FAERS Safety Report 6534914-3 (Version None)
Quarter: 2010Q1

REPORT INFORMATION
  Report Type: 
  Country: None (occurrence: None)
  Receive Date: 20100112
  Receipt Date: 20100107
  Transmission Date: 20100710
  Serious: Yes (Hospitalization)
  Sender: FDA-Public Use
  Company Number: DE-AMGEN-US329308

PATIENT
  Sex: Male
  Weight: 96 kg

DRUGS (1)
  1. ENBREL [Suspect]
     Indication: PSORIATIC ARTHROPATHY
     Route: 058
     Dates: start: 20071213, end: 20081127

REACTIONS (2)
  - DEMYELINATION [None]
  - ENCEPHALOMYELITIS [None]
